FAERS Safety Report 25771174 (Version 1)
Quarter: 2025Q3

REPORT INFORMATION
  Report Type: Spontaneous
  Country: US (occurrence: US)
  Receive Date: 20250908
  Receipt Date: 20250908
  Transmission Date: 20251020
  Serious: No
  Sender: DOMPE FARMACEUTICI
  Company Number: US-FARMAPROD-202504-1067

PATIENT
  Sex: Female

DRUGS (11)
  1. OXERVATE [Suspect]
     Active Substance: CENEGERMIN-BKBJ
     Indication: Neurotrophic keratopathy
     Route: 047
     Dates: start: 20250305
  2. OXERVATE [Suspect]
     Active Substance: CENEGERMIN-BKBJ
  3. OXERVATE [Suspect]
     Active Substance: CENEGERMIN-BKBJ
  4. METRONIDAZOLE [Concomitant]
     Active Substance: METRONIDAZOLE
  5. MOXIFLOXACIN [Concomitant]
     Active Substance: MOXIFLOXACIN
  6. BLINK TEARS [Concomitant]
     Active Substance: POLYETHYLENE GLYCOL 400
  7. CYMBALTA [Concomitant]
     Active Substance: DULOXETINE HYDROCHLORIDE
  8. HYDROXYCHLOROQUINE SULFATE [Concomitant]
     Active Substance: HYDROXYCHLOROQUINE SULFATE
  9. FAMOTIDINE [Concomitant]
     Active Substance: FAMOTIDINE
  10. ACYCLOVIR [Concomitant]
     Active Substance: ACYCLOVIR
  11. LEVOTHYROXINE SODIUM [Concomitant]
     Active Substance: LEVOTHYROXINE SODIUM

REACTIONS (6)
  - Eye pain [Unknown]
  - Eye irritation [Not Recovered/Not Resolved]
  - Ocular discomfort [Unknown]
  - Taste disorder [Unknown]
  - Product odour abnormal [Unknown]
  - Hordeolum [Unknown]
